FAERS Safety Report 7373170-3 (Version None)
Quarter: 2011Q1

REPORT INFORMATION
  Report Type: 
  Country: None (occurrence: None)
  Receive Date: 20110324
  Receipt Date: 20110315
  Transmission Date: 20110831
  Serious: Yes (Hospitalization)
  Sender: FDA-Public Use
  Company Number: US-ASTRAZENECA-2011SE04477

PATIENT
  Age: 29 Year
  Sex: Male
  Weight: 81.6 kg

DRUGS (5)
  1. SEROQUEL [Suspect]
     Route: 048
     Dates: start: 20101025
  2. TEGRETOL [Concomitant]
     Indication: DEPRESSION
     Route: 048
  3. SEROQUEL [Suspect]
     Indication: BIPOLAR DISORDER
     Route: 048
     Dates: start: 20080101, end: 20101020
  4. CELEXA [Concomitant]
     Indication: DEPRESSION
     Route: 048
  5. MEVALON [Concomitant]

REACTIONS (4)
  - PSYCHOTIC BEHAVIOUR [None]
  - INFLUENZA [None]
  - BRONCHITIS [None]
  - DRUG DOSE OMISSION [None]
